FAERS Safety Report 5284779-5 (Version None)
Quarter: 2007Q2

REPORT INFORMATION
  Report Type: 
  Country: None (occurrence: None)
  Receive Date: 20070403
  Receipt Date: 20070403
  Transmission Date: 20071010
  Serious: Yes (Other)
  Sender: FDA-Public Use
  Company Number: US-GLAXOSMITHKLINE-A0645511A

PATIENT
  Sex: Male

DRUGS (1)
  1. GOODY'S EXTRA STRENGTH HEADACHE POWDER [Suspect]
     Route: 048

REACTIONS (3)
  - DEPENDENCE [None]
  - PHARMACEUTICAL PRODUCT COMPLAINT [None]
  - STOMACH DISCOMFORT [None]
